FAERS Safety Report 5484983-7 (Version None)
Quarter: 2007Q4

REPORT INFORMATION
  Report Type: 
  Country: None (occurrence: None)
  Receive Date: 20071001
  Receipt Date: 20070918
  Transmission Date: 20080405
  Serious: Yes (Other)
  Sender: FDA-Public Use
  Company Number: THYM-11542

PATIENT
  Age: 57 Year
  Sex: Male

DRUGS (1)
  1. THYMOGLOBULIN [Suspect]
     Indication: LIVER TRANSPLANT
     Dosage: 125 MG QD IV
     Route: 042
     Dates: start: 20070917

REACTIONS (2)
  - HYPOTENSION [None]
  - INFUSION RELATED REACTION [None]
